FAERS Safety Report 21036172 (Version 1)
Quarter: 2022Q3

REPORT INFORMATION
  Report Type: Spontaneous
  Country: US (occurrence: US)
  Receive Date: 20220701
  Receipt Date: 20220701
  Transmission Date: 20221026
  Serious: Yes (Other)
  Sender: FDA-Public Use
  Company Number: US-GILEAD-2022-0588090

PATIENT
  Sex: Female

DRUGS (1)
  1. HARVONI [Suspect]
     Active Substance: LEDIPASVIR\SOFOSBUVIR
     Indication: Product used for unknown indication
     Route: 065

REACTIONS (20)
  - Neuropathy peripheral [Unknown]
  - Faeces discoloured [Unknown]
  - Pain in extremity [Unknown]
  - Pain [Not Recovered/Not Resolved]
  - Tinnitus [Unknown]
  - Myalgia [Unknown]
  - Neuralgia [Unknown]
  - Respiratory disorder [Unknown]
  - Hepatomegaly [Not Recovered/Not Resolved]
  - Swelling [Not Recovered/Not Resolved]
  - Peripheral swelling [Not Recovered/Not Resolved]
  - Weight increased [Unknown]
  - Visual impairment [Unknown]
  - Muscle spasms [Unknown]
  - Arthralgia [Unknown]
  - Constipation [Unknown]
  - Insomnia [Unknown]
  - Diarrhoea [Unknown]
  - Nausea [Unknown]
  - Fatigue [Unknown]
